FAERS Safety Report 7601256-4 (Version None)
Quarter: 2011Q3

REPORT INFORMATION
  Report Type: 
  Country: None (occurrence: None)
  Receive Date: 20110711
  Receipt Date: 20110627
  Transmission Date: 20111222
  Serious: Yes (Other)
  Sender: FDA-Public Use
  Company Number: CA-JNJFOC-20110613067

PATIENT
  Sex: Male
  Weight: 91 kg

DRUGS (5)
  1. REMICADE [Suspect]
     Indication: CROHN'S DISEASE
     Dosage: 5 MG/KG EVERY 8 WEEKS
     Route: 042
     Dates: start: 20090901
  2. BENADRYL [Concomitant]
     Indication: PREMEDICATION
     Route: 065
  3. ACETAMINOPHEN [Concomitant]
     Indication: PREMEDICATION
     Route: 048
  4. NEXIUM [Concomitant]
     Route: 065
  5. PENTASA [Concomitant]
     Route: 065

REACTIONS (5)
  - BLOOD PRESSURE INCREASED [None]
  - HAEMATEMESIS [None]
  - NAUSEA [None]
  - ABDOMINAL PAIN UPPER [None]
  - INFUSION RELATED REACTION [None]
